FAERS Safety Report 9858253 (Version 1)
Quarter: 2014Q1

REPORT INFORMATION
  Report Type: Report from Study
  Country: CA (occurrence: CA)
  Receive Date: 20140131
  Receipt Date: 20140131
  Transmission Date: 20141002
  Serious: Yes (Other)
  Sender: FDA-Public Use
  Company Number: CA-JNJFOC-20140115744

PATIENT
  Sex: Female
  Weight: 73.4 kg

DRUGS (5)
  1. REMICADE [Suspect]
     Indication: CROHN^S DISEASE
     Route: 042
     Dates: start: 20131017
  2. MARVELON [Concomitant]
     Route: 065
  3. BENADRYL [Concomitant]
     Route: 065
  4. TYLENOL 3 [Concomitant]
     Route: 065
  5. BUSCOPAN [Concomitant]
     Route: 065

REACTIONS (3)
  - Night blindness [Unknown]
  - Constipation [Unknown]
  - Mucous stools [Unknown]
